FAERS Safety Report 4897083-1 (Version None)
Quarter: 2005Q4

REPORT INFORMATION
  Report Type: 
  Country: None (occurrence: None)
  Receive Date: 20051228
  Receipt Date: 20050725
  Transmission Date: 20060501
  Serious: Yes (Hospitalization, Other)
  Sender: FDA-Public Use
  Company Number: USA0507103631

PATIENT
  Age: 64 Year
  Sex: Male
  Weight: 59 kg

DRUGS (3)
  1. HUMALOG [Suspect]
     Dosage: 62 U DAY
     Dates: start: 19960101
  2. HUMULIN R [Suspect]
  3. HUMULIN L [Suspect]

REACTIONS (7)
  - BLOOD PRESSURE DECREASED [None]
  - BLOOD PRESSURE INCREASED [None]
  - CEREBROVASCULAR ACCIDENT [None]
  - DIZZINESS [None]
  - DYSKINESIA [None]
  - FALL [None]
  - MOTOR DYSFUNCTION [None]
